FAERS Safety Report 11377878 (Version 1)
Quarter: 2015Q3

REPORT INFORMATION
  Report Type: Spontaneous
  Country: US (occurrence: US)
  Receive Date: 20150811
  Receipt Date: 20150811
  Transmission Date: 20151125
  Serious: No
  Sender: FDA-Public Use
  Company Number: US-ELI_LILLY_AND_COMPANY-US200910006650

PATIENT
  Age: 51 Year
  Sex: Male

DRUGS (1)
  1. HUMULIN N [Suspect]
     Active Substance: INSULIN HUMAN

REACTIONS (4)
  - Headache [Not Recovered/Not Resolved]
  - Poor quality drug administered [Unknown]
  - Nausea [Not Recovered/Not Resolved]
  - Product odour abnormal [Unknown]

NARRATIVE: CASE EVENT DATE: 200910
